FAERS Safety Report 23559443 (Version 1)
Quarter: 2024Q1

REPORT INFORMATION
  Report Type: Spontaneous
  Country: US (occurrence: US)
  Receive Date: 20240223
  Receipt Date: 20240223
  Transmission Date: 20240409
  Serious: No
  Sender: FDA-Public Use
  Company Number: US-ABBVIE-5650463

PATIENT

DRUGS (2)
  1. UPADACITINIB [Suspect]
     Active Substance: UPADACITINIB
     Indication: Crohn^s disease
     Dosage: FREQUENCY TEXT: INDUCTION DOSE
     Route: 048
  2. UPADACITINIB [Suspect]
     Active Substance: UPADACITINIB
     Indication: Crohn^s disease
     Route: 048

REACTIONS (3)
  - Headache [Unknown]
  - Dizziness [Unknown]
  - Paraesthesia [Unknown]
